FAERS Safety Report 10224415 (Version 2)
Quarter: 2014Q4

REPORT INFORMATION
  Report Type: Spontaneous
  Country: US (occurrence: None)
  Receive Date: 20140605
  Receipt Date: 20141006
  Transmission Date: 20150528
  Serious: Yes (Hospitalization)
  Sender: FDA-Public Use
  Company Number: UNT-2014-001180

PATIENT
  Age: 72 Year
  Sex: Female
  Weight: 68 kg

DRUGS (4)
  1. REMODULIN [Suspect]
     Active Substance: TREPROSTINIL
     Indication: COR PULMONALE CHRONIC
     Dosage: 0.022 UG/KG/MIN, CONTINUING, SUBCUTANEOUS
     Route: 058
     Dates: start: 20131108
  2. TRACLEER [Concomitant]
     Active Substance: BOSENTAN\BOSENTAN MONOHYDRATE
  3. REVATIO (SILDENAFIL CITRATE) [Concomitant]
  4. WARFARIN (WARFARIN) [Concomitant]
     Active Substance: WARFARIN

REACTIONS (3)
  - Pain [None]
  - Fluid overload [None]
  - Ascites [None]

NARRATIVE: CASE EVENT DATE: 2014
